FAERS Safety Report 7435579-9 (Version None)
Quarter: 2011Q2

REPORT INFORMATION
  Report Type: 
  Country: None (occurrence: None)
  Receive Date: 20110418
  Receipt Date: 20110401
  Transmission Date: 20111010
  Serious: Yes (Death)
  Sender: FDA-Public Use
  Company Number: AE 2011-138

PATIENT
  Age: 47 Year
  Sex: Male
  Weight: 97.5 kg

DRUGS (4)
  1. CODEINE [Concomitant]
  2. HYDROXYZINE [Concomitant]
  3. CLOZAPINE [Suspect]
     Dosage: 625 MG DAILY PO
     Route: 048
  4. AMITRIPTYLINE [Concomitant]

REACTIONS (6)
  - LEFT VENTRICULAR HYPERTROPHY [None]
  - ABDOMINAL DISTENSION [None]
  - MYOCARDIAL ISCHAEMIA [None]
  - CONSTIPATION [None]
  - ARTERIOSCLEROSIS CORONARY ARTERY [None]
  - HYPERTENSION [None]
